FAERS Safety Report 11971567 (Version 1)
Quarter: 2016Q1

REPORT INFORMATION
  Report Type: Spontaneous
  Country: US (occurrence: US)
  Receive Date: 20160128
  Receipt Date: 20160128
  Transmission Date: 20160526
  Serious: Yes (Other)
  Sender: FDA-Public Use
  Company Number: US-PFIZER INC-2016042945

PATIENT
  Age: 16 Year
  Sex: Male
  Weight: 54.42 kg

DRUGS (1)
  1. GENOTROPIN MQ [Suspect]
     Active Substance: SOMATROPIN
     Indication: DWARFISM
     Dosage: 2 MG, 1X/DAY
     Route: 058
     Dates: start: 20150203

REACTIONS (1)
  - Seizure [Recovered/Resolved]
